FAERS Safety Report 9715778 (Version 12)
Quarter: 2016Q2

REPORT INFORMATION
  Report Type: Report from Study
  Country: US (occurrence: US)
  Receive Date: 20131127
  Receipt Date: 20160420
  Transmission Date: 20160815
  Serious: Yes (Death, Life-Threatening)
  Sender: FDA-Public Use
  Company Number: US-SA-2013SA118216

PATIENT
  Age: 72 Year
  Sex: Male
  Weight: 89.5 kg

DRUGS (19)
  1. COREG [Concomitant]
     Active Substance: CARVEDILOL
     Indication: CARDIAC DISORDER
     Dosage: DOSE - 12.5
     Route: 048
     Dates: start: 201302
  2. PREDNISONE. [Concomitant]
     Active Substance: PREDNISONE
     Dosage: DOSE - 5 FOR PCA
     Route: 048
     Dates: start: 201212
  3. ZANTAC [Concomitant]
     Active Substance: RANITIDINE HYDROCHLORIDE
     Indication: GASTRIC DISORDER
     Route: 048
     Dates: start: 201307
  4. GABAPENTIN. [Concomitant]
     Active Substance: GABAPENTIN
     Indication: RESTLESS LEGS SYNDROME
     Route: 048
     Dates: start: 201304
  5. SILODOSIN [Concomitant]
     Active Substance: SILODOSIN
     Indication: HYPERTENSION
     Route: 048
     Dates: start: 2008
  6. VICODIN [Concomitant]
     Active Substance: ACETAMINOPHEN\HYDROCODONE BITARTRATE
     Indication: BONE PAIN
     Dosage: DOSE - 5/500
     Route: 048
     Dates: start: 20131105
  7. CARBIDOPA/LEVODOPA [Concomitant]
     Route: 048
     Dates: start: 201307
  8. ACETYLSALICYLIC ACID [Concomitant]
     Active Substance: ASPIRIN
     Indication: CARDIAC DISORDER
     Route: 048
     Dates: start: 2003
  9. TYLENOL [Concomitant]
     Active Substance: ACETAMINOPHEN
     Indication: PAIN
     Route: 048
     Dates: start: 20131029
  10. DOCETAXEL. [Suspect]
     Active Substance: DOCETAXEL
     Indication: PROSTATE CANCER METASTATIC
     Route: 042
     Dates: start: 20131104, end: 20131104
  11. SINAREST [Concomitant]
     Indication: RESTLESS LEGS SYNDROME
     Route: 065
     Dates: start: 201307
  12. COUMADIN [Concomitant]
     Active Substance: WARFARIN SODIUM
     Indication: ATRIAL FIBRILLATION
     Route: 048
     Dates: start: 2010
  13. SPIRONOLACTONE. [Concomitant]
     Active Substance: SPIRONOLACTONE
     Indication: BLOOD PRESSURE MEASUREMENT
     Route: 048
     Dates: start: 2012
  14. PREDNISONE. [Suspect]
     Active Substance: PREDNISONE
     Indication: PROSTATE CANCER METASTATIC
     Route: 048
     Dates: start: 20131104, end: 20131112
  15. AMIODARONE [Concomitant]
     Active Substance: AMIODARONE
     Indication: CARDIAC DISORDER
     Route: 048
     Dates: start: 2010
  16. LIPITOR [Concomitant]
     Active Substance: ATORVASTATIN CALCIUM
     Indication: HYPERCHOLESTEROLAEMIA
     Route: 048
     Dates: start: 2003
  17. DEXAMETHASONE. [Concomitant]
     Active Substance: DEXAMETHASONE
     Route: 048
     Dates: start: 20131103
  18. LASIX [Concomitant]
     Active Substance: FUROSEMIDE
     Indication: CARDIAC DISORDER
     Route: 048
     Dates: start: 2010
  19. REQUIP [Concomitant]
     Active Substance: ROPINIROLE HYDROCHLORIDE
     Indication: RESTLESS LEGS SYNDROME
     Route: 048
     Dates: start: 2012

REACTIONS (2)
  - White blood cell count decreased [Not Recovered/Not Resolved]
  - Myocardial infarction [Fatal]

NARRATIVE: CASE EVENT DATE: 20131111
